FAERS Safety Report 6056321-2 (Version None)
Quarter: 2009Q1

REPORT INFORMATION
  Report Type: 
  Country: None (occurrence: None)
  Receive Date: 20090129
  Receipt Date: 20081031
  Transmission Date: 20090719
  Serious: No
  Sender: FDA-Public Use
  Company Number: A0755232A

PATIENT

DRUGS (2)
  1. FLOVENT [Suspect]
     Indication: DRUG USE FOR UNKNOWN INDICATION
     Route: 055
  2. NASONEX [Suspect]
     Route: 045

REACTIONS (3)
  - DENTAL CARIES [None]
  - DRY MOUTH [None]
  - PALATAL DISORDER [None]
